FAERS Safety Report 4792009-3 (Version None)
Quarter: 2005Q4

REPORT INFORMATION
  Report Type: 
  Country: None (occurrence: None)
  Receive Date: 20051006
  Receipt Date: 20050919
  Transmission Date: 20060501
  Serious: Yes (Death)
  Sender: FDA-Public Use
  Company Number: PAR_0210_2005

PATIENT
  Age: 49 Year

DRUGS (3)
  1. BENZTROPINE MESYLATE [Suspect]
     Dosage: DF UNK PO
     Route: 048
  2. ZIPRASIDONE [Suspect]
     Dosage: DF UNK PO
  3. MEMANTINE HCL [Suspect]
     Dosage: DF,  PO
     Route: 048

REACTIONS (2)
  - COMPLETED SUICIDE [None]
  - OVERDOSE [None]
